FAERS Safety Report 4808964-9 (Version None)
Quarter: 2005Q4

REPORT INFORMATION
  Report Type: 
  Country: None (occurrence: None)
  Receive Date: 20051025
  Receipt Date: 20051005
  Transmission Date: 20060501
  Serious: Yes (Other)
  Sender: FDA-Public Use
  Company Number: US-ROCHE-420264

PATIENT
  Age: 41 Year
  Sex: Male

DRUGS (2)
  1. PEGASYS [Suspect]
     Dosage: ROUTE REPORTED AS INJECTABLE
     Route: 050
     Dates: start: 20050906
  2. COPEGUS [Suspect]
     Dosage: DOSAGE REGIMEN REPORTED AS 2AM AND 3PM
     Route: 048
     Dates: start: 20050906

REACTIONS (5)
  - GASTRITIS [None]
  - HAEMATEMESIS [None]
  - NECK MASS [None]
  - PHARYNGOLARYNGEAL PAIN [None]
  - PYREXIA [None]
